FAERS Safety Report 7197096-3 (Version None)
Quarter: 2010Q4

REPORT INFORMATION
  Report Type: 
  Country: None (occurrence: None)
  Receive Date: 20101224
  Receipt Date: 20101220
  Transmission Date: 20110411
  Serious: Yes (Other)
  Sender: FDA-Public Use
  Company Number: US-AMGEN-USASP2010008286

PATIENT

DRUGS (3)
  1. ENBREL [Suspect]
     Indication: RHEUMATOID ARTHRITIS
     Route: 058
     Dates: start: 20100801
  2. ENBREL [Suspect]
     Indication: OFF LABEL USE
  3. METHOTREXATE [Concomitant]

REACTIONS (7)
  - ANAPHYLACTIC SHOCK [None]
  - ARTHRALGIA [None]
  - BLOOD CREATININE INCREASED [None]
  - DYSPNOEA [None]
  - GENERALISED OEDEMA [None]
  - PAIN IN EXTREMITY [None]
  - URTICARIA [None]
